FAERS Safety Report 18627370 (Version 1)
Quarter: 2020Q4

REPORT INFORMATION
  Report Type: Report from Study
  Country: FR (occurrence: FR)
  Receive Date: 20201217
  Receipt Date: 20201217
  Transmission Date: 20210114
  Serious: Yes (Death, Hospitalization)
  Sender: FDA-Public Use
  Company Number: FR-BAYER-2020-278606

PATIENT
  Age: 79 Year
  Sex: Male
  Weight: 78 kg

DRUGS (10)
  1. TRASYLOL [Suspect]
     Active Substance: APROTININ
     Indication: BENTALL PROCEDURE
     Dosage: 350 MILLILITRE TOTAL LOADING DOSE 1 MILLION KIU PUMP PRIMING DOSE 1 MILLION KIU TOTAL CONTINUOUS INF
     Route: 065
     Dates: start: 20190303, end: 20190303
  2. ASPIRIN [ACETYLSALICYLIC ACID] [Concomitant]
     Active Substance: ASPIRIN
     Indication: ANTIPLATELET THERAPY
     Dosage: UNK
     Route: 065
     Dates: start: 201903
  3. PROTHROMBIN COMPLEX CONCENTRATE NOS [Concomitant]
     Active Substance: COAGULATION FACTOR IX HUMAN\COAGULATION FACTOR VII HUMAN\COAGULATION FACTOR X HUMAN\PROTHROMBIN
     Indication: EPISTAXIS
     Dosage: 1000 MILLILITRE INTRA- AND  POST-OPERATIVELY (UP TO 48 HOURS)
     Dates: start: 201903
  4. FACTOR VIIA [Concomitant]
     Active Substance: COAGULATION FACTOR VIIA HUMAN
     Indication: HAEMORRHAGE PROPHYLAXIS
     Dosage: UNK
     Dates: start: 20190303
  5. PLATELETS [Concomitant]
     Active Substance: HUMAN PLATELET, ALLOGENIC
     Indication: PLATELET TRANSFUSION
     Dosage: 600 MILLILITRE INTRA- AND POST-OPERATIVELY (UP TO 48 HOURS)
     Dates: start: 201903
  6. FRESH FROZEN PLASMA [Concomitant]
     Active Substance: HUMAN PLASMA
     Indication: TRANSFUSION
     Dosage: 1000 MILLILITRE INTRA- AND POST-OPERATIVELY (UP TO 48 HOURS)
     Dates: start: 201903
  7. TRASYLOL [Suspect]
     Active Substance: APROTININ
     Indication: MITRAL VALVE REPLACEMENT
  8. HEPARIN [Concomitant]
     Active Substance: HEPARIN SODIUM
     Indication: ANTICOAGULANT THERAPY
     Dosage: 34 KILO-INTERNATIONAL UNIT TOTAL DURING SURGERY
     Dates: start: 20190303, end: 20190303
  9. RED BLOOD CELLS [Concomitant]
     Active Substance: HUMAN RED BLOOD CELL
     Indication: PACKED RED BLOOD CELL TRANSFUSION
     Dosage: 1200 MILLILITRE INTRA- AND POST-OPERATIVELY (UP TO 48 HOURS)
     Dates: start: 201903
  10. FIBRINOGEN [Concomitant]
     Active Substance: FIBRINOGEN HUMAN
     Indication: EPISTAXIS
     Dosage: 2 GRAM INTRA- AND POST OPERATIVELY HOURS)
     Dates: start: 201903

REACTIONS (3)
  - Product use in unapproved indication [Recovered/Resolved]
  - Off label use [Recovered/Resolved]
  - Blood creatinine increased [Recovered/Resolved]

NARRATIVE: CASE EVENT DATE: 20190303
